FAERS Safety Report 9664004 (Version 2)
Quarter: 2014Q1

REPORT INFORMATION
  Report Type: Spontaneous
  Country: US (occurrence: US)
  Receive Date: 20131101
  Receipt Date: 20140312
  Transmission Date: 20141002
  Serious: Yes (Other)
  Sender: FDA-Public Use
  Company Number: US-BAYER-2013-133228

PATIENT
  Age: 43 Year
  Sex: Female
  Weight: 79.37 kg

DRUGS (9)
  1. YAZ [Suspect]
     Dosage: UNK
     Route: 048
     Dates: start: 2008, end: 2009
  2. YASMIN [Suspect]
     Dosage: UNK
     Route: 048
     Dates: start: 2008, end: 2009
  3. OCELLA [Suspect]
     Dosage: UNK
     Route: 048
     Dates: start: 2008, end: 2009
  4. CEPHALEXIN [Concomitant]
     Dosage: 500 MG, UNK
  5. OXYCODONE/APAP [Concomitant]
     Dosage: 5-325MG
  6. ZOLOFT [Concomitant]
     Dosage: 50 MG, UNK
  7. IMITREX [Concomitant]
     Dosage: 500 MG, PRN
  8. NALFON [Concomitant]
     Dosage: 200 MG, UNK
  9. VICODIN [Concomitant]
     Dosage: UNK UNK, PRN

REACTIONS (9)
  - Thrombosis [None]
  - Deep vein thrombosis [None]
  - Injury [None]
  - Pain [None]
  - General physical health deterioration [None]
  - Abdominal pain [None]
  - Emotional distress [None]
  - Anxiety [None]
  - Pain [None]
